FAERS Safety Report 5473638-0 (Version None)
Quarter: 2007Q4

REPORT INFORMATION
  Report Type: 
  Country: None (occurrence: None)
  Receive Date: 20071001
  Receipt Date: 20070924
  Transmission Date: 20080405
  Serious: Yes (Death, Other)
  Sender: FDA-Public Use
  Company Number: ES-ROXANE LABORATORIES, INC-2007-BP-21526RO

PATIENT
  Age: 19 Year
  Sex: Male

DRUGS (10)
  1. METHOTREXATE [Suspect]
     Indication: ACUTE LYMPHOCYTIC LEUKAEMIA
     Route: 037
  2. METHOTREXATE [Suspect]
     Route: 042
  3. PREDNISONE [Suspect]
     Indication: ACUTE LYMPHOCYTIC LEUKAEMIA
  4. DEXAMETHASONE 0.5MG TAB [Suspect]
     Indication: ACUTE LYMPHOCYTIC LEUKAEMIA
     Route: 042
  5. VINCRISTINE [Suspect]
     Indication: ACUTE LYMPHOCYTIC LEUKAEMIA
     Route: 042
  6. DAUNORRUBICIN [Suspect]
     Indication: ACUTE LYMPHOCYTIC LEUKAEMIA
     Route: 042
  7. CYTARABINE [Suspect]
     Indication: ACUTE LYMPHOCYTIC LEUKAEMIA
     Route: 037
  8. CYTARABINE [Suspect]
     Route: 042
  9. HYDROCORTISONE [Suspect]
     Indication: ACUTE LYMPHOCYTIC LEUKAEMIA
     Route: 037
  10. IMMUNE GLOBULIN INTRAVENOUS (HUMAN) [Concomitant]
     Indication: GUILLAIN-BARRE SYNDROME
     Route: 042

REACTIONS (12)
  - ABASIA [None]
  - AREFLEXIA [None]
  - BLADDER DISORDER [None]
  - CHEMOTHERAPY NEUROTOXICITY ATTENUATION [None]
  - CSF PROTEIN INCREASED [None]
  - DIFFUSE AXONAL INJURY [None]
  - ERECTILE DYSFUNCTION [None]
  - LEUKAEMIA RECURRENT [None]
  - LUNG INFECTION PSEUDOMONAL [None]
  - MUSCULAR WEAKNESS [None]
  - PARAPARESIS [None]
  - TREMOR [None]
